FAERS Safety Report 18792665 (Version 1)
Quarter: 2021Q1

REPORT INFORMATION
  Report Type: Spontaneous
  Country: US (occurrence: US)
  Receive Date: 20210127
  Receipt Date: 20210127
  Transmission Date: 20210419
  Serious: No
  Sender: FDA-Public Use
  Company Number: US-ALLERGAN-2036758US

PATIENT
  Age: 48 Year
  Sex: Female

DRUGS (1)
  1. ALORA [Suspect]
     Active Substance: ESTRADIOL
     Indication: HORMONE REPLACEMENT THERAPY
     Dosage: UNK
     Route: 061
     Dates: start: 202009

REACTIONS (3)
  - Application site erythema [Not Recovered/Not Resolved]
  - Application site burn [Not Recovered/Not Resolved]
  - Product adhesion issue [Unknown]

NARRATIVE: CASE EVENT DATE: 202009
